FAERS Safety Report 16703733 (Version 3)
Quarter: 2019Q3

REPORT INFORMATION
  Report Type: Report from Study
  Country: ES (occurrence: ES)
  Receive Date: 20190814
  Receipt Date: 20190926
  Transmission Date: 20191004
  Serious: Yes (Other)
  Sender: FDA-Public Use
  Company Number: ES-AMGEN-ESPNI2019129993

PATIENT
  Age: 40 Year
  Sex: Female

DRUGS (1)
  1. ERENUMAB [Suspect]
     Active Substance: ERENUMAB
     Indication: MIGRAINE
     Dosage: 70 OT, UNK
     Route: 058
     Dates: start: 20190703

REACTIONS (9)
  - Rash [Recovered/Resolved]
  - Skin oedema [Recovered/Resolved]
  - Papule [Recovered/Resolved]
  - Urticaria [Recovered/Resolved]
  - Skin swelling [Recovered/Resolved]
  - Flushing [Recovered/Resolved]
  - Pruritus [Recovered/Resolved]
  - Erythema [Recovered/Resolved]
  - Toxic skin eruption [Recovered/Resolved]

NARRATIVE: CASE EVENT DATE: 20190703
